FAERS Safety Report 14783825 (Version 1)
Quarter: 2018Q2

REPORT INFORMATION
  Report Type: Spontaneous
  Country: US (occurrence: US)
  Receive Date: 20180413
  Receipt Date: 20180413
  Transmission Date: 20180711
  Serious: Yes (Other)
  Sender: FDA-Public Use
  Company Number: None

PATIENT
  Age: 35 Year
  Sex: Female
  Weight: 144.24 kg

DRUGS (3)
  1. IBUPROFEN PM [Concomitant]
     Active Substance: DIPHENHYDRAMINE CITRATE\IBUPROFEN
  2. ONE A DAY WOMAN^S [Concomitant]
  3. NEXPLANON [Suspect]
     Active Substance: ETONOGESTREL

REACTIONS (7)
  - Mood swings [None]
  - Suicidal ideation [None]
  - Implant site pain [None]
  - Pain [None]
  - Insomnia [None]
  - Fatigue [None]
  - Pyrexia [None]

NARRATIVE: CASE EVENT DATE: 20180326
